FAERS Safety Report 4648695-1 (Version None)
Quarter: 2005Q2

REPORT INFORMATION
  Report Type: 
  Country: None (occurrence: None)
  Receive Date: 20050427
  Receipt Date: 20050328
  Transmission Date: 20051028
  Serious: Yes (Hospitalization)
  Sender: FDA-Public Use
  Company Number: PAR_0007_2005

PATIENT
  Age: 76 Year
  Sex: Female

DRUGS (4)
  1. ISOPTIN SR [Suspect]
     Indication: SUICIDE ATTEMPT
     Dosage: 840 MG ONCE PO
     Route: 048
     Dates: start: 20050328, end: 20050328
  2. AFONILUM RETARD MITE [Suspect]
     Indication: SUICIDE ATTEMPT
     Dosage: 875 MG ONCE PO
     Route: 048
     Dates: start: 20050328, end: 20050328
  3. RAMIPRIL [Suspect]
     Indication: SUICIDE ATTEMPT
     Dosage: 35 MG ONCE PO
     Route: 048
     Dates: start: 20050328, end: 20050328
  4. HYDROCHLOROTHIAZIDE [Suspect]
     Indication: SUICIDE ATTEMPT
     Dosage: 175 MG ONCE PO
     Route: 048
     Dates: start: 20050328, end: 20050328

REACTIONS (2)
  - OVERDOSE [None]
  - SUICIDE ATTEMPT [None]
